FAERS Safety Report 24707965 (Version 1)
Quarter: 2024Q4

REPORT INFORMATION
  Report Type: Report from Study
  Country: JP (occurrence: JP)
  Receive Date: 20241206
  Receipt Date: 20241206
  Transmission Date: 20250115
  Serious: Yes (Death)
  Sender: SHIONOGI
  Company Number: JP-shionogi-202405404_FTR_P_1

PATIENT
  Age: 1 Year

DRUGS (1)
  1. CEFIDEROCOL [Suspect]
     Active Substance: CEFIDEROCOL
     Indication: Haemorrhagic pneumonia
     Route: 041

REACTIONS (3)
  - Death [Fatal]
  - Product administered to patient of inappropriate age [Unknown]
  - Off label use [Unknown]
